FAERS Safety Report 24825612 (Version 3)
Quarter: 2025Q1

REPORT INFORMATION
  Report Type: Spontaneous
  Country: IN (occurrence: IN)
  Receive Date: 20250109
  Receipt Date: 20250205
  Transmission Date: 20250408
  Serious: Yes (Death, Life-Threatening, Hospitalization, Other)
  Sender: PFIZER
  Company Number: IN-PFIZER INC-PV202400100864

PATIENT
  Age: 64 Year
  Sex: Male

DRUGS (8)
  1. LORLATINIB [Suspect]
     Active Substance: LORLATINIB
     Indication: Non-small cell lung cancer
     Dosage: 100 MG, ONCE A DAY
     Route: 048
     Dates: start: 20240621
  2. GOSERELIN [Concomitant]
     Active Substance: GOSERELIN
     Dosage: 10.8 MG, ONCE EVERY 3 MONTHS
     Route: 058
     Dates: start: 202311
  3. PREDNISOLONE [Concomitant]
     Active Substance: PREDNISOLONE
     Dosage: 5 MG, 1X/DAY WITH BREAKFAST
     Route: 048
  4. SHELCAL M [Concomitant]
     Dosage: 1 DF, 1X/DAY
     Route: 048
  5. LUMIA 60K [Concomitant]
     Dosage: 1 CAPSULE ONCE A MONTH
     Route: 048
  6. ZABPRO [Concomitant]
     Dosage: 500 MG, 1X/DAY TO BE TAKEN WITH  FATTY FOOD
     Route: 048
     Dates: start: 202206
  7. OMNACORTIL [PREDNISOLONE] [Concomitant]
     Dates: start: 202206
  8. TENOFOVIR [Concomitant]
     Active Substance: TENOFOVIR
     Indication: Hepatitis B

REACTIONS (6)
  - Death [Fatal]
  - Lower respiratory tract infection [Unknown]
  - Sepsis [Unknown]
  - Acute coronary syndrome [Unknown]
  - Accelerated hypertension [Unknown]
  - Product dose omission issue [Unknown]

NARRATIVE: CASE EVENT DATE: 20240801
